FAERS Safety Report 5809939-3 (Version None)
Quarter: 2008Q3

REPORT INFORMATION
  Report Type: 
  Country: None (occurrence: None)
  Receive Date: 20080715
  Receipt Date: 20080707
  Transmission Date: 20090109
  Serious: Yes (Hospitalization, Other)
  Sender: FDA-Public Use
  Company Number: US-AMGEN-US288805

PATIENT
  Sex: Female
  Weight: 79.5 kg

DRUGS (14)
  1. PROCRIT [Suspect]
     Indication: ANAEMIA
     Route: 058
     Dates: start: 20020101
  2. AVAPRO [Concomitant]
     Route: 065
  3. ACIPHEX [Concomitant]
     Route: 065
  4. TRICOR [Concomitant]
     Route: 065
  5. CHOLESTYRAMINE [Concomitant]
     Route: 065
  6. AZATHIOPRINE [Concomitant]
     Route: 065
  7. PRIMIDONE [Concomitant]
     Route: 065
  8. HYDROCHLOROTHIAZIDE [Concomitant]
     Route: 048
  9. NEXIUM [Concomitant]
     Route: 065
  10. LASIX [Concomitant]
     Route: 048
  11. LOTREL [Concomitant]
     Route: 048
  12. PROTONIX [Concomitant]
     Route: 048
  13. LOVENOX [Concomitant]
     Route: 065
  14. ESIDRIX [Concomitant]
     Route: 065

REACTIONS (5)
  - ANAEMIA [None]
  - ESCHERICHIA URINARY TRACT INFECTION [None]
  - HYPERKALAEMIA [None]
  - OESOPHAGITIS [None]
  - RENAL FAILURE ACUTE [None]
